FAERS Safety Report 22607495 (Version 1)
Quarter: 2023Q2

REPORT INFORMATION
  Report Type: Report from Study
  Country: CN (occurrence: CN)
  Receive Date: 20230616
  Receipt Date: 20230616
  Transmission Date: 20230722
  Serious: Yes (Other)
  Sender: FDA-Public Use
  Company Number: CN-JNJFOC-20210323690

PATIENT

DRUGS (2)
  1. SPORANOX [Interacting]
     Active Substance: ITRACONAZOLE
     Indication: Systemic mycosis
     Route: 042
  2. SPORANOX [Interacting]
     Active Substance: ITRACONAZOLE
     Indication: Systemic mycosis
     Route: 048

REACTIONS (6)
  - Drug interaction [Unknown]
  - Ileus paralytic [Unknown]
  - Hepatic function abnormal [Unknown]
  - Rash [Unknown]
  - Diarrhoea [Unknown]
  - Drug ineffective [Unknown]
